FAERS Safety Report 4889803-7 (Version None)
Quarter: 2006Q1

REPORT INFORMATION
  Report Type: 
  Country: None (occurrence: None)
  Receive Date: 20060124
  Receipt Date: 20051005
  Transmission Date: 20060701
  Serious: Yes (Death, Hospitalization)
  Sender: FDA-Public Use
  Company Number: US-MERCK-0510USA03383

PATIENT
  Age: 47 Year
  Sex: Male
  Weight: 102 kg

DRUGS (1)
  1. VIOXX [Suspect]
     Indication: MONARTHRITIS
     Route: 048
     Dates: start: 20040801, end: 20040828

REACTIONS (7)
  - AUTOIMMUNE THYROIDITIS [None]
  - CARDIAC ARREST [None]
  - CARDIOMYOPATHY [None]
  - ENDOCARDIAL FIBROSIS [None]
  - MYOCARDIAL INFARCTION [None]
  - PERICARDITIS [None]
  - VIRAL INFECTION [None]
